FAERS Safety Report 23442147 (Version 1)
Quarter: 2024Q1

REPORT INFORMATION
  Report Type: Spontaneous
  Country: CN (occurrence: CN)
  Receive Date: 20240125
  Receipt Date: 20240125
  Transmission Date: 20240409
  Serious: Yes (Other)
  Sender: FDA-Public Use
  Company Number: CN-SA-SAC20240122000790

PATIENT
  Age: 76 Year
  Sex: Female

DRUGS (4)
  1. ENOXAPARIN SODIUM [Suspect]
     Active Substance: ENOXAPARIN SODIUM
     Indication: Anticoagulant therapy
     Dosage: 0.40 ML BID
     Route: 058
     Dates: start: 20230814, end: 20230819
  2. ASPIRIN [Suspect]
     Active Substance: ASPIRIN
     Indication: Anticoagulant therapy
     Dosage: 100 MG QD
     Route: 048
     Dates: start: 20230809, end: 20230820
  3. TICAGRELOR [Suspect]
     Active Substance: TICAGRELOR
     Dosage: 90 MG BID
     Route: 048
     Dates: start: 20230809, end: 20230820
  4. CLOPIDOGREL [Suspect]
     Active Substance: CLOPIDOGREL BISULFATE
     Dosage: 75 MG

REACTIONS (5)
  - Brain herniation [Unknown]
  - Cerebral haemorrhage [Unknown]
  - Headache [Unknown]
  - Somnolence [Unknown]
  - Mydriasis [Unknown]

NARRATIVE: CASE EVENT DATE: 20230820
